FAERS Safety Report 16104654 (Version 1)
Quarter: 2019Q1

REPORT INFORMATION
  Report Type: Report from Study
  Country: US (occurrence: US)
  Receive Date: 20190322
  Receipt Date: 20190322
  Transmission Date: 20190418
  Serious: Yes (Hospitalization)
  Sender: FDA-Public Use
  Company Number: US-ROCHE-2286540

PATIENT
  Age: 2 Year
  Sex: Female

DRUGS (6)
  1. NUTROPIN AQ [Suspect]
     Active Substance: SOMATROPIN
     Route: 058
  2. CLARITIN [Concomitant]
     Active Substance: LORATADINE
  3. NUTROPIN AQ [Suspect]
     Active Substance: SOMATROPIN
     Indication: GROWTH HORMONE DEFICIENCY
     Dosage: NUSPIN 5 .5 MG 6DAYS/WEEK
     Route: 058
  4. NUTROPIN AQ [Suspect]
     Active Substance: SOMATROPIN
     Route: 058
  5. NUTROPIN AQ [Suspect]
     Active Substance: SOMATROPIN
     Route: 058
  6. NUTROPIN AQ [Suspect]
     Active Substance: SOMATROPIN
     Route: 058

REACTIONS (13)
  - Upper respiratory tract infection [Unknown]
  - Conjunctivitis [Unknown]
  - Alopecia [Unknown]
  - Pharyngitis streptococcal [Unknown]
  - Gastroenteritis [Unknown]
  - Pancreatitis [Unknown]
  - Dehydration [Unknown]
  - Injection site pain [Unknown]
  - Otitis media [Unknown]
  - Eyelid margin crusting [Unknown]
  - Rhinorrhoea [Recovered/Resolved]
  - Fall [Unknown]
  - Coxsackie viral infection [Unknown]

NARRATIVE: CASE EVENT DATE: 201812
